FAERS Safety Report 25728982 (Version 2)
Quarter: 2025Q3

REPORT INFORMATION
  Report Type: Spontaneous
  Country: US (occurrence: US)
  Receive Date: 20250826
  Receipt Date: 20250901
  Transmission Date: 20251021
  Serious: Yes (Life-Threatening, Other)
  Sender: ABBVIE
  Company Number: US-ABBVIE-6432652

PATIENT
  Age: 30 Year
  Sex: Female

DRUGS (1)
  1. SYNTHROID [Suspect]
     Active Substance: LEVOTHYROXINE SODIUM
     Indication: Medullary thyroid cancer
     Route: 048
     Dates: start: 1997

REACTIONS (5)
  - Blood thyroid stimulating hormone abnormal [Not Recovered/Not Resolved]
  - Blindness [Unknown]
  - Overdose [Unknown]
  - Thyroid cancer metastatic [Unknown]
  - Off label use [Unknown]
